FAERS Safety Report 5133429-7 (Version None)
Quarter: 2006Q4

REPORT INFORMATION
  Report Type: 
  Country: None (occurrence: None)
  Receive Date: 20061024
  Receipt Date: 20041209
  Transmission Date: 20070319
  Serious: Yes (Hospitalization)
  Sender: FDA-Public Use
  Company Number: 2004AP06281

PATIENT
  Age: 18448 Day
  Sex: Male
  Weight: 64.5 kg

DRUGS (8)
  1. IRESSA [Suspect]
     Indication: SQUAMOUS CELL CARCINOMA
     Route: 048
     Dates: start: 20041101, end: 20041219
  2. IRESSA [Suspect]
     Route: 048
     Dates: start: 20041219
  3. CISPLATIN [Suspect]
     Indication: SQUAMOUS CELL CARCINOMA
     Route: 042
     Dates: start: 20041102, end: 20041209
  4. RADIOTHERAPY [Suspect]
     Indication: SQUAMOUS CELL CARCINOMA
     Dosage: 2 GY DAILY
     Dates: start: 20041102, end: 20041209
  5. RADIOTHERAPY [Suspect]
     Dosage: 2 GY DAILY
     Dates: start: 20041220
  6. IBUPROFEN [Concomitant]
     Indication: PAIN
     Route: 048
     Dates: start: 20041102
  7. LIDOCAINE [Concomitant]
     Indication: ORAL PAIN
     Route: 048
     Dates: start: 20041108
  8. ALQUEN [Concomitant]
     Indication: PROPHYLAXIS AGAINST GASTROINTESTINAL ULCER
     Route: 048
     Dates: start: 20041108

REACTIONS (2)
  - FEBRILE NEUTROPENIA [None]
  - MUCOSAL INFLAMMATION [None]
